FAERS Safety Report 5943433-4 (Version None)
Quarter: 2008Q4

REPORT INFORMATION
  Report Type: 
  Country: None (occurrence: None)
  Receive Date: 20081106
  Receipt Date: 20081023
  Transmission Date: 20090506
  Serious: Yes (Hospitalization, Other)
  Sender: FDA-Public Use
  Company Number: US-ELI_LILLY_AND_COMPANY-US200810005784

PATIENT
  Sex: Female

DRUGS (2)
  1. FORTEO [Suspect]
     Indication: OSTEOPOROSIS
     Dosage: UNK, UNK
     Dates: start: 20080701, end: 20080801
  2. FORTEO [Suspect]
     Dates: start: 20080801

REACTIONS (3)
  - BONE DENSITY DECREASED [None]
  - BONE DISORDER [None]
  - FRACTURE [None]
